FAERS Safety Report 5421936-9 (Version None)
Quarter: 2007Q3

REPORT INFORMATION
  Report Type: 
  Country: None (occurrence: None)
  Receive Date: 20070822
  Receipt Date: 20070813
  Transmission Date: 20080115
  Serious: Yes (Hospitalization)
  Sender: FDA-Public Use
  Company Number: DE-NOVOPROD-266437

PATIENT
  Sex: Female
  Weight: 115 kg

DRUGS (4)
  1. LEVEMIR [Suspect]
     Dosage: 62 IE, UNK
     Route: 058
     Dates: start: 20070523, end: 20070618
  2. ASPIRIN [Concomitant]
     Dosage: 100 MG, QD
     Route: 048
     Dates: start: 20000101
  3. METOPROLOL SUCCINATE [Concomitant]
     Dosage: 95 MG, QD
     Route: 048
     Dates: start: 19970101
  4. DIOVAN HCT [Concomitant]
     Dates: start: 20000101

REACTIONS (5)
  - ANXIETY [None]
  - ERYTHEMA [None]
  - HYPERTENSION [None]
  - METABOLIC DISORDER [None]
  - PRURITUS [None]
